FAERS Safety Report 18407195 (Version 2)
Quarter: 2020Q4

REPORT INFORMATION
  Report Type: Spontaneous
  Country: JP (occurrence: JP)
  Receive Date: 20201020
  Receipt Date: 20201113
  Transmission Date: 20210114
  Serious: Yes (Disabling)
  Sender: FDA-Public Use
  Company Number: JP-ASTRAZENECA-2020SF34140

PATIENT
  Age: 77 Year
  Sex: Female
  Weight: 65 kg

DRUGS (16)
  1. ILUAMIX [Concomitant]
     Dosage: 1 DF DAILY, AFTER BREAKFAST
     Route: 048
  2. FEBURIC [Concomitant]
     Active Substance: FEBUXOSTAT
     Dosage: AFTER SUPPER, 20 MG DAILY
     Route: 048
  3. TRAZENTA [Concomitant]
     Active Substance: LINAGLIPTIN
     Dosage: AFTER BREAKFAST, 5 MG DAILY
     Route: 048
  4. DOXAZOSIN [Concomitant]
     Active Substance: DOXAZOSIN MESYLATE
     Dosage: 1 TABLET (2 MG)/MORNING. 2 TABLETS (4 MG)/EVENING.
     Route: 048
  5. ATELEC [Concomitant]
     Active Substance: CILNIDIPINE
     Dosage: 10 MG DAILY, BEFORE SLEEP
     Route: 048
  6. TAGRISSO [Suspect]
     Active Substance: OSIMERTINIB
     Indication: NON-SMALL CELL LUNG CANCER
     Route: 048
     Dates: start: 20200825, end: 20200911
  7. RABEPRAZOLE NA [Concomitant]
     Active Substance: RABEPRAZOLE SODIUM
     Dosage: 10 MG DAILY, AFTER BREAKFAST
     Route: 048
  8. TULOBUTEROL [Concomitant]
     Active Substance: TULOBUTEROL
     Route: 062
  9. PEMILASTON [Concomitant]
     Dosage: AFTER BREAKFAST AND SUPPER, 10 MG TWICE A DAY
     Route: 048
  10. TAGRISSO [Suspect]
     Active Substance: OSIMERTINIB
     Indication: NON-SMALL CELL LUNG CANCER
     Route: 048
     Dates: start: 20200918, end: 20201009
  11. ALDACTONE A [Concomitant]
     Active Substance: SPIRONOLACTONE
     Dosage: 25 MG DAILY, AFTER BREAKFAST
     Route: 048
  12. LORATADINE OD [Concomitant]
     Dosage: 10 MG DAILY, BEFORE SLEEP
     Route: 048
  13. MEQUITAZINE [Concomitant]
     Active Substance: MEQUITAZINE
     Dosage: AFTER BREAKFAST AND SLEEP, 3 MG TWICE A DAY
     Route: 048
  14. ROSUVASTATIN. [Concomitant]
     Active Substance: ROSUVASTATIN
     Dosage: 2.5 MG DAILY, AFTER BREAKFAST
     Route: 048
  15. HIBON [Concomitant]
     Active Substance: RIBOFLAVIN
     Dosage: AFTER BREAKFAST AND SUPPER, 40 MG BID
     Route: 048
  16. SYMBICORT [Concomitant]
     Active Substance: BUDESONIDE\FORMOTEROL FUMARATE DIHYDRATE
     Route: 055

REACTIONS (1)
  - Chronic kidney disease [Recovered/Resolved]

NARRATIVE: CASE EVENT DATE: 20200911
